FAERS Safety Report 5194391-4 (Version None)
Quarter: 2006Q4

REPORT INFORMATION
  Report Type: 
  Country: None (occurrence: None)
  Receive Date: 20061228
  Receipt Date: 20061219
  Transmission Date: 20070319
  Serious: Yes (Hospitalization)
  Sender: FDA-Public Use
  Company Number: DE-PFIZER INC-2006155213

PATIENT
  Sex: Female
  Weight: 59 kg

DRUGS (6)
  1. LONOLOX [Suspect]
     Indication: HYPERTENSION
     Route: 048
     Dates: start: 20060101, end: 20061211
  2. ASPIRIN [Concomitant]
  3. FUROSEMIDE [Concomitant]
  4. METOPROLOL SUCCINATE [Concomitant]
     Route: 048
  5. DIOVANE [Concomitant]
     Route: 048
  6. ANTI-PHOSPHAT [Concomitant]

REACTIONS (2)
  - HAEMOLYSIS [None]
  - PANCREATITIS [None]
